FAERS Safety Report 5315451-0 (Version None)
Quarter: 2007Q2

REPORT INFORMATION
  Report Type: 
  Country: None (occurrence: None)
  Receive Date: 20070503
  Receipt Date: 20070426
  Transmission Date: 20071010
  Serious: Yes (Hospitalization)
  Sender: FDA-Public Use
  Company Number: FR-JNJFOC-20070405865

PATIENT
  Age: 48 Year
  Sex: Female

DRUGS (2)
  1. TAVANIC [Suspect]
     Indication: STAPHYLOCOCCAL SEPSIS
     Route: 042
  2. ROCEPHIN [Suspect]
     Indication: STAPHYLOCOCCAL SEPSIS
     Route: 042

REACTIONS (4)
  - HAEMOGLOBIN DECREASED [None]
  - RED BLOOD CELL COUNT DECREASED [None]
  - VASCULAR PURPURA [None]
  - WHITE BLOOD CELL COUNT DECREASED [None]
